FAERS Safety Report 21876908 (Version 2)
Quarter: 2023Q1

REPORT INFORMATION
  Report Type: Spontaneous
  Country: CA (occurrence: CA)
  Receive Date: 20230118
  Receipt Date: 20230123
  Transmission Date: 20230418
  Serious: Yes (Other)
  Sender: FDA-Public Use
  Company Number: CA-CELLTRION INC.-2023CA000725

PATIENT

DRUGS (4)
  1. INFLIXIMAB [Suspect]
     Active Substance: INFLIXIMAB
     Indication: Rheumatoid arthritis
     Dosage: 120 MG, EVERY TWO WEEKS
     Route: 058
     Dates: start: 20221227
  2. METHOTREXATE [Concomitant]
     Active Substance: METHOTREXATE
     Dosage: 17.5 MG, WEEKLY
     Route: 048
  3. FOLIC ACID [Concomitant]
     Active Substance: FOLIC ACID
     Dosage: 5 MG DAILY EXCEPT MXT DAY
  4. VITAMIN D [Concomitant]
     Active Substance: VITAMIN D NOS
     Dosage: DAILY

REACTIONS (4)
  - COVID-19 [Not Recovered/Not Resolved]
  - Injection site rash [Recovered/Resolved]
  - Injection site warmth [Recovered/Resolved]
  - Intentional dose omission [Unknown]

NARRATIVE: CASE EVENT DATE: 20230110
